FAERS Safety Report 9458902 (Version 2)
Quarter: 2014Q4

REPORT INFORMATION
  Report Type: Report from Study
  Country: JP (occurrence: JP)
  Receive Date: 20130814
  Receipt Date: 20141230
  Transmission Date: 20150529
  Serious: Yes (Hospitalization, Other)
  Sender: FDA-Public Use
  Company Number: JP-GLAXOSMITHKLINE-B0914462A

PATIENT
  Age: 81 Year
  Sex: Female

DRUGS (9)
  1. SPIROPENT [Concomitant]
     Active Substance: CLENBUTEROL HYDROCHLORIDE
     Route: 048
  2. AMLODIPINE [Concomitant]
     Active Substance: AMLODIPINE BESYLATE
     Route: 048
  3. FONDAPARINUX SODIUM. [Suspect]
     Active Substance: FONDAPARINUX SODIUM
     Indication: PULMONARY EMBOLISM
     Route: 058
     Dates: start: 20121231, end: 20130102
  4. PIROLACTON [Concomitant]
     Active Substance: SPIRONOLACTONE
     Route: 048
  5. LUPRAC [Concomitant]
     Active Substance: TORSEMIDE
     Route: 048
  6. D-ALFA [Concomitant]
     Route: 048
  7. SIGMART [Concomitant]
     Active Substance: NICORANDIL
     Route: 048
  8. VESICARE OD [Concomitant]
     Route: 048
  9. WARFARIN POTASSIUM [Suspect]
     Active Substance: WARFARIN POTASSIUM
     Indication: PULMONARY EMBOLISM
     Route: 048
     Dates: start: 20121231

REACTIONS (3)
  - Large intestinal haemorrhage [Recovered/Resolved]
  - Cholecystitis acute [Recovered/Resolved]
  - Melaena [Recovered/Resolved]

NARRATIVE: CASE EVENT DATE: 20130103
